FAERS Safety Report 4801981-4 (Version None)
Quarter: 2005Q4

REPORT INFORMATION
  Report Type: 
  Country: None (occurrence: None)
  Receive Date: 20051012
  Receipt Date: 20050929
  Transmission Date: 20060501
  Serious: Yes (Disabling, Other)
  Sender: FDA-Public Use
  Company Number: 200508567

PATIENT
  Sex: Female

DRUGS (1)
  1. BOTOX [Suspect]
     Indication: FACIAL SPASM
     Dates: start: 20020501, end: 20020501

REACTIONS (6)
  - DROOLING [None]
  - DRY EYE [None]
  - ECONOMIC PROBLEM [None]
  - FACIAL PALSY [None]
  - PARALYSIS [None]
  - SPEECH DISORDER [None]
